FAERS Safety Report 8999667 (Version 1)
Quarter: 2013Q1

REPORT INFORMATION
  Report Type: Spontaneous
  Country: US (occurrence: US)
  Receive Date: 20130102
  Receipt Date: 20130102
  Transmission Date: 20140127
  Serious: No
  Sender: FDA-Public Use
  Company Number: US-BAYER-2012-135475

PATIENT
  Sex: Female

DRUGS (2)
  1. CLIMARA [Suspect]
     Route: 062
  2. CLIMARA [Suspect]

REACTIONS (3)
  - Product adhesion issue [None]
  - Product quality issue [None]
  - Intercepted drug dispensing error [None]
